FAERS Safety Report 7595762-9 (Version None)
Quarter: 2011Q3

REPORT INFORMATION
  Report Type: 
  Country: None (occurrence: None)
  Receive Date: 20110707
  Receipt Date: 20110628
  Transmission Date: 20111222
  Serious: Yes (Hospitalization)
  Sender: FDA-Public Use
  Company Number: RU-GENZYME-CERZ-1002113

PATIENT
  Age: 54 Year
  Sex: Female
  Weight: 80 kg

DRUGS (3)
  1. LORISTA [Concomitant]
     Indication: HYPERTENSION
     Dosage: UNK
     Dates: start: 20090501
  2. CEREZYME [Suspect]
     Indication: GAUCHER'S DISEASE
     Dosage: 15 U/KG, Q2W
     Route: 042
     Dates: start: 20090401
  3. ANTIHYPERTENSIVES [Concomitant]
     Indication: PRODUCT USED FOR UNKNOWN INDICATION

REACTIONS (6)
  - ANGIOEDEMA [None]
  - SWELLING FACE [None]
  - CHEST PAIN [None]
  - DYSPNOEA [None]
  - PETECHIAE [None]
  - URTICARIA [None]
